FAERS Safety Report 10638340 (Version 1)
Quarter: 2014Q4

REPORT INFORMATION
  Report Type: Spontaneous
  Country: FR (occurrence: FR)
  Receive Date: 20141208
  Receipt Date: 20141208
  Transmission Date: 20150529
  Serious: Yes (Hospitalization, Other)
  Sender: FDA-Public Use
  Company Number: FR-GLAXOSMITHKLINE-FR2014GSK029329

PATIENT
  Age: 5 Month
  Sex: Male

DRUGS (7)
  1. LAMICTAL [Suspect]
     Active Substance: LAMOTRIGINE
     Dosage: 50 UNK, UNK
     Route: 048
     Dates: start: 20140929, end: 20141005
  2. LAMICTAL [Suspect]
     Active Substance: LAMOTRIGINE
     Indication: PRODUCT USED FOR UNKNOWN INDICATION
     Dosage: 25 MG, QD
     Route: 048
     Dates: start: 20140909, end: 20140928
  3. REYATAZ [Concomitant]
     Active Substance: ATAZANAVIR SULFATE
     Indication: HIV INFECTION
  4. TRUVADA [Concomitant]
     Active Substance: EMTRICITABINE\TENOFOVIR DISOPROXIL FUMARATE
     Indication: HIV INFECTION
  5. TERCIAN [Suspect]
     Active Substance: CYAMEMAZINE
     Indication: PRODUCT USED FOR UNKNOWN INDICATION
     Dosage: UNK
     Route: 048
     Dates: start: 20140919, end: 20141005
  6. TERALITHE [Concomitant]
     Active Substance: LITHIUM CARBONATE
     Indication: BIPOLAR DISORDER
     Dosage: 400 MG, UNK
     Dates: start: 201404
  7. NORVIR [Concomitant]
     Active Substance: RITONAVIR
     Indication: HIV INFECTION

REACTIONS (1)
  - Drug reaction with eosinophilia and systemic symptoms [Recovered/Resolved]

NARRATIVE: CASE EVENT DATE: 20141004
